FAERS Safety Report 5843539-4 (Version None)
Quarter: 2008Q3

REPORT INFORMATION
  Report Type: 
  Country: None (occurrence: None)
  Receive Date: 20080808
  Receipt Date: 20080730
  Transmission Date: 20090109
  Serious: Yes (Hospitalization)
  Sender: FDA-Public Use
  Company Number: S04-FRA-08162-01

PATIENT
  Age: 35 Year
  Sex: Female
  Weight: 99 kg

DRUGS (2)
  1. PROPESS (DINOPROSTONE) (10 MILLIGRAM, VAGINAL INSERT) [Suspect]
     Indication: LABOUR INDUCTION
     Dosage: 10 MG (10 MG, ONCE) , VAGINAL
     Route: 067
     Dates: start: 20040524, end: 20040525
  2. VISCERALGINE (TIEMONIUM MESILATE) (1, SUPPOSITORY) (TIEMONIUM MESILATE [Concomitant]

REACTIONS (4)
  - CAESAREAN SECTION [None]
  - DRUG EXPOSURE DURING PREGNANCY [None]
  - INTRA-UTERINE DEATH [None]
  - PELVIC PAIN [None]
